FAERS Safety Report 9304387 (Version 1)
Quarter: 2013Q2

REPORT INFORMATION
  Report Type: Spontaneous
  Country: IT (occurrence: IT)
  Receive Date: 20130522
  Receipt Date: 20130522
  Transmission Date: 20140414
  Serious: Yes (Other)
  Sender: FDA-Public Use
  Company Number: IT-MYLANLABS-2013S1010506

PATIENT
  Age: 21 Year
  Sex: Female

DRUGS (1)
  1. PANTOPRAZOLE [Suspect]
     Indication: HYPERCHLORHYDRIA
     Route: 048
     Dates: start: 20130508, end: 20130508

REACTIONS (3)
  - Cough [Recovered/Resolved]
  - Dyspnoea [Recovered/Resolved]
  - Tongue oedema [Recovered/Resolved]
